FAERS Safety Report 4993251-9 (Version None)
Quarter: 2006Q1

REPORT INFORMATION
  Report Type: 
  Country: None (occurrence: None)
  Receive Date: 20060314
  Receipt Date: 20050629
  Transmission Date: 20060701
  Serious: Yes (Hospitalization)
  Sender: FDA-Public Use
  Company Number: 200511399BCC

PATIENT
  Age: 62 Year
  Sex: Female
  Weight: 54.4316 kg

DRUGS (5)
  1. ALEVE (CAPLET) [Suspect]
     Indication: BACK PAIN
     Dosage: 440 MG, ONCE, ORAL
     Route: 048
     Dates: start: 20050330
  2. ASPIRIN [Suspect]
     Indication: PROPHYLAXIS
     Dosage: 81 MG, TOTAL DAILY, ORAL
     Route: 048
  3. LIPITOR [Concomitant]
  4. DYAZIDE [Concomitant]
  5. PRINIVIL [Concomitant]

REACTIONS (9)
  - ANAPHYLACTIC REACTION [None]
  - DYSPNOEA [None]
  - ERYTHEMA [None]
  - OEDEMA [None]
  - OEDEMA PERIPHERAL [None]
  - PHARYNGEAL OEDEMA [None]
  - PRURITUS [None]
  - SWELLING FACE [None]
  - SWOLLEN TONGUE [None]
